FAERS Safety Report 12315258 (Version 1)
Quarter: 2016Q2

REPORT INFORMATION
  Report Type: Spontaneous
  Country: US (occurrence: US)
  Receive Date: 20160428
  Receipt Date: 20160428
  Transmission Date: 20160815
  Serious: No
  Sender: FDA-Public Use
  Company Number: US-ENDO PHARMACEUTICALS INC.-2015-002790

PATIENT
  Age: 71 Year
  Sex: Female
  Weight: 104.42 kg

DRUGS (1)
  1. DOXYCYCLINE HYCLATE 100MG [Suspect]
     Active Substance: DOXYCYCLINE HYCLATE
     Indication: RESPIRATORY TRACT INFECTION
     Route: 048
     Dates: start: 20150909

REACTIONS (1)
  - Headache [Recovered/Resolved]

NARRATIVE: CASE EVENT DATE: 20150909
